FAERS Safety Report 14236687 (Version 3)
Quarter: 2019Q2

REPORT INFORMATION
  Report Type: Report from Study
  Country: GB (occurrence: GB)
  Receive Date: 20171129
  Receipt Date: 20190617
  Transmission Date: 20190711
  Serious: Yes (Other)
  Sender: FDA-Public Use
  Company Number: GB-ROCHE-2028488

PATIENT
  Sex: Male

DRUGS (3)
  1. ROSUVASTATIN. [Concomitant]
     Active Substance: ROSUVASTATIN
     Route: 065
  2. RAMIPRIL. [Concomitant]
     Active Substance: RAMIPRIL
     Route: 065
  3. ROACTEMRA [Suspect]
     Active Substance: TOCILIZUMAB
     Indication: RHEUMATOID ARTHRITIS
     Route: 058
     Dates: start: 20170720

REACTIONS (7)
  - Infected skin ulcer [Unknown]
  - Ill-defined disorder [Unknown]
  - Immunodeficiency [Unknown]
  - Rash [Unknown]
  - Infection [Unknown]
  - Skin ulcer [Unknown]
  - Diverticulitis [Unknown]

NARRATIVE: CASE EVENT DATE: 20171011
